FAERS Safety Report 9723395 (Version 1)
Quarter: 2013Q4

REPORT INFORMATION
  Report Type: Spontaneous
  Country: US (occurrence: US)
  Receive Date: 20131202
  Receipt Date: 20131202
  Transmission Date: 20140711
  Serious: Yes (Other)
  Sender: FDA-Public Use
  Company Number: US-BRISTOL-MYERS SQUIBB COMPANY-19855592

PATIENT
  Sex: 0

DRUGS (2)
  1. ABILIFY [Suspect]
     Indication: PSYCHOTIC DISORDER
  2. ABILIFY MAINTENA INJECTION [Suspect]
     Indication: PSYCHOTIC DISORDER

REACTIONS (2)
  - Psychotic disorder [Unknown]
  - Off label use [Unknown]
